FAERS Safety Report 23452610 (Version 2)
Quarter: 2024Q3

REPORT INFORMATION
  Report Type: Spontaneous
  Country: US (occurrence: US)
  Receive Date: 20240129
  Receipt Date: 20240730
  Transmission Date: 20241017
  Serious: No
  Sender: SAREPTA THERAPEUTICS
  Company Number: US-SAREPTA THERAPEUTICS INC.-SRP2023-004188

PATIENT
  Age: 14 Year
  Sex: Male
  Weight: 45.2 kg

DRUGS (6)
  1. AMONDYS 45 [Suspect]
     Active Substance: CASIMERSEN
     Indication: Duchenne muscular dystrophy
     Dosage: 1400 MILLIGRAM, WEEKLY
     Route: 042
     Dates: start: 20220321, end: 20231219
  2. AMONDYS 45 [Suspect]
     Active Substance: CASIMERSEN
     Dosage: 1400 MILLIGRAM, WEEKLY
     Route: 042
     Dates: start: 20240119
  3. CALCIUM CARBONATE [Concomitant]
     Active Substance: CALCIUM CARBONATE
     Indication: Product used for unknown indication
     Dosage: 500 MILLIGRAM, QD
     Route: 048
     Dates: start: 20161018
  4. VITAMIN D3 [Concomitant]
     Active Substance: CHOLECALCIFEROL
     Indication: Product used for unknown indication
     Dosage: 2000 UNITS, DAILY
     Route: 048
     Dates: start: 20161018
  5. EMFLAZA [Concomitant]
     Active Substance: DEFLAZACORT
     Indication: Product used for unknown indication
     Dosage: 30 MILLIGRAM TABLET, QD
     Dates: start: 20220128
  6. HYDROCORTISONE SODIUM SUCCINATE [Concomitant]
     Active Substance: HYDROCORTISONE SODIUM SUCCINATE
     Indication: Stress
     Dosage: INJ, 100 MILLIGRAM VIALS, PRN
     Dates: start: 20210611

REACTIONS (3)
  - Intentional dose omission [Unknown]
  - Product dose omission issue [Unknown]
  - No adverse event [Unknown]

NARRATIVE: CASE EVENT DATE: 20231228
